FAERS Safety Report 12794860 (Version 2)
Quarter: 2017Q1

REPORT INFORMATION
  Report Type: Spontaneous
  Country: US (occurrence: US)
  Receive Date: 20160929
  Receipt Date: 20170320
  Transmission Date: 20170428
  Serious: Yes (Other)
  Sender: FDA-Public Use
  Company Number: US-JNJFOC-20160917134

PATIENT
  Sex: Male

DRUGS (9)
  1. RISPERDAL [Suspect]
     Active Substance: RISPERIDONE
     Indication: AFFECTIVE DISORDER
     Route: 048
     Dates: start: 201307, end: 201404
  2. RISPERDAL [Suspect]
     Active Substance: RISPERIDONE
     Indication: ANXIETY DISORDER
     Route: 048
     Dates: start: 201405, end: 201406
  3. RISPERDAL [Suspect]
     Active Substance: RISPERIDONE
     Indication: AFFECTIVE DISORDER
     Route: 048
     Dates: start: 201303, end: 201306
  4. RISPERDAL [Suspect]
     Active Substance: RISPERIDONE
     Indication: ANXIETY DISORDER
     Route: 048
     Dates: start: 201303, end: 201306
  5. RISPERDAL [Suspect]
     Active Substance: RISPERIDONE
     Indication: ANXIETY DISORDER
     Route: 048
     Dates: start: 201307, end: 201404
  6. RISPERDAL [Suspect]
     Active Substance: RISPERIDONE
     Indication: ANXIETY DISORDER
     Route: 048
     Dates: start: 200207, end: 200208
  7. RISPERIDONE. [Suspect]
     Active Substance: RISPERIDONE
     Indication: PRODUCT USED FOR UNKNOWN INDICATION
     Route: 048
  8. RISPERDAL [Suspect]
     Active Substance: RISPERIDONE
     Indication: AFFECTIVE DISORDER
     Route: 048
     Dates: start: 201405, end: 201406
  9. RISPERDAL [Suspect]
     Active Substance: RISPERIDONE
     Indication: AFFECTIVE DISORDER
     Route: 048
     Dates: start: 200207, end: 200208

REACTIONS (7)
  - Gynaecomastia [Unknown]
  - Product use issue [Unknown]
  - Off label use [Unknown]
  - Hyperglycaemia [Unknown]
  - Obesity [Unknown]
  - Hyperprolactinaemia [Unknown]
  - Galactorrhoea [Unknown]

NARRATIVE: CASE EVENT DATE: 2002
